FAERS Safety Report 9599487 (Version 1)
Quarter: 2013Q4

REPORT INFORMATION
  Report Type: Spontaneous
  Country: US (occurrence: US)
  Receive Date: 20131004
  Receipt Date: 20131004
  Transmission Date: 20140711
  Serious: No
  Sender: FDA-Public Use
  Company Number: US-AMGEN-USASP2013029018

PATIENT
  Age: 62 Year
  Sex: Female
  Weight: 91.16 kg

DRUGS (8)
  1. ENBREL [Suspect]
     Indication: PRODUCT USED FOR UNKNOWN INDICATION
     Dosage: 50 MG, QWK
     Route: 058
  2. ZOCOR [Concomitant]
     Dosage: 10 MG, UNK
  3. METOPROLOL [Concomitant]
     Dosage: 25 MG, ER
  4. TEKTURNA HCT [Concomitant]
     Dosage: TAB 150-12.5
  5. PYRIDOXINE [Concomitant]
     Dosage: 100 MG, UNK
  6. METHYLPRED [Concomitant]
     Dosage: 8 MG, UNK
  7. TRAZODONE [Concomitant]
     Dosage: 100 MG, UNK
  8. PAXIL                              /00500401/ [Concomitant]
     Dosage: 10 MG, UNK

REACTIONS (2)
  - Injection site reaction [Unknown]
  - Injection site swelling [Unknown]
